FAERS Safety Report 16330606 (Version 1)
Quarter: 2019Q2

REPORT INFORMATION
  Report Type: Spontaneous
  Country: US (occurrence: US)
  Receive Date: 20190520
  Receipt Date: 20190520
  Transmission Date: 20190711
  Serious: No
  Sender: FDA-Public Use
  Company Number: US-CONCORDIA PHARMACEUTICALS INC.-GSH201806-002207

PATIENT
  Sex: Female

DRUGS (7)
  1. ENBREL [Suspect]
     Active Substance: ETANERCEPT
  2. DICLOFENAC [Concomitant]
     Active Substance: DICLOFENAC
  3. SULFASALAZINE. [Concomitant]
     Active Substance: SULFASALAZINE
  4. REGLAN [Suspect]
     Active Substance: METOCLOPRAMIDE HYDROCHLORIDE
  5. METHOTREXATE. [Suspect]
     Active Substance: METHOTREXATE
  6. LEFLUNOMIDE. [Concomitant]
     Active Substance: LEFLUNOMIDE
  7. HYDROXYCHLOROQUINE [Suspect]
     Active Substance: HYDROXYCHLOROQUINE

REACTIONS (2)
  - Drug hypersensitivity [Unknown]
  - Nausea [Unknown]
